FAERS Safety Report 19486885 (Version 2)
Quarter: 2021Q3

REPORT INFORMATION
  Report Type: Spontaneous
  Country: CA (occurrence: CA)
  Receive Date: 20210702
  Receipt Date: 20210723
  Transmission Date: 20211014
  Serious: Yes (Other)
  Sender: FDA-Public Use
  Company Number: CA-BAUSCH-BL-2021-022065

PATIENT
  Age: 77 Year
  Sex: Female

DRUGS (1)
  1. EFUDEX [Suspect]
     Active Substance: FLUOROURACIL
     Indication: BASAL CELL CARCINOMA
     Dosage: STARTED A FEW YEARS AGO (3 OR 5 YEARS AGO) USES IT ONLY 7 DAYS A MONTH RECOMMENDED BY HER PHYSICIAN.
     Route: 061

REACTIONS (1)
  - Basal cell carcinoma [Not Recovered/Not Resolved]
